FAERS Safety Report 4871013-0 (Version None)
Quarter: 2005Q4

REPORT INFORMATION
  Report Type: 
  Country: None (occurrence: None)
  Receive Date: 20051228
  Receipt Date: 20051209
  Transmission Date: 20060501
  Serious: Yes (Other)
  Sender: FDA-Public Use
  Company Number: USA0509109490

PATIENT
  Age: 73 Year
  Sex: Female

DRUGS (6)
  1. CYMBALTA [Suspect]
     Indication: NEURALGIA
     Dosage: 60 MG, DAILY (1/D)
  2. PREVACID [Concomitant]
  3. PREDNISONE [Concomitant]
  4. PERCODAN (ACETYLSALICYLIC ACID, CAFFEINE, HOMATROPINE TEREPHTHALATE, O [Concomitant]
  5. ZOFRAN [Concomitant]
  6. XANAX /USA/ (ALPRAZOLAM) [Concomitant]

REACTIONS (9)
  - CONVULSION [None]
  - DYSKINESIA [None]
  - EXTRAPYRAMIDAL DISORDER [None]
  - HUNTINGTON'S CHOREA [None]
  - MUSCLE TWITCHING [None]
  - POSTURING [None]
  - SPEECH DISORDER [None]
  - TARDIVE DYSKINESIA [None]
  - TREMOR [None]
